FAERS Safety Report 16099913 (Version 1)
Quarter: 2019Q1

REPORT INFORMATION
  Report Type: Spontaneous
  Country: US (occurrence: US)
  Receive Date: 20190218
  Receipt Date: 20190218
  Transmission Date: 20190418
  Serious: No
  Sender: FDA-Public Use
  Company Number: None

PATIENT
  Age: 61 Year
  Sex: Female

DRUGS (1)
  1. TEMOZOLOMIDE CAP 100MG [Suspect]
     Active Substance: TEMOZOLOMIDE
     Dosage: ?          OTHER DOSE:340MG DAYS 1-5;?
     Route: 048
     Dates: start: 2019

REACTIONS (1)
  - Off label use [None]

NARRATIVE: CASE EVENT DATE: 20190218
